FAERS Safety Report 22196139 (Version 1)
Quarter: 2023Q2

REPORT INFORMATION
  Report Type: Spontaneous
  Country: US (occurrence: US)
  Receive Date: 20230411
  Receipt Date: 20230411
  Transmission Date: 20230721
  Serious: Yes (Hospitalization)
  Sender: FDA-Public Use
  Company Number: US-STRIDES ARCOLAB LIMITED-2023SP004958

PATIENT
  Age: 29 Year
  Sex: Female

DRUGS (4)
  1. ETOPOSIDE [Suspect]
     Active Substance: ETOPOSIDE
     Indication: Hodgkin^s disease
     Dosage: UNK (RECEIVED UNDER THE DBVE CHEMOTHERAPY) (THERAPY COMPLETED PRIOR TO THE PULMONARY SYNOVIAL SARCOM
     Route: 065
  2. DOXORUBICIN [Suspect]
     Active Substance: DOXORUBICIN
     Indication: Hodgkin^s disease
     Dosage: UNK (RECEIVED UNDER THE DBVE CHEMOTHERAPY) (THERAPY COMPLETED PRIOR TO THE PULMONARY SYNOVIAL SARCOM
     Route: 065
  3. BLEOMYCIN [Suspect]
     Active Substance: BLEOMYCIN SULFATE
     Indication: Hodgkin^s disease
     Dosage: UNK (RECEIVED UNDER THE DBVE CHEMOTHERAPY) (THERAPY COMPLETED PRIOR TO THE PULMONARY SYNOVIAL SARCOM
     Route: 065
  4. VINCRISTINE [Suspect]
     Active Substance: VINCRISTINE
     Indication: Hodgkin^s disease
     Dosage: UNK (RECEIVED UNDER THE DBVE CHEMOTHERAPY) (THERAPY COMPLETED PRIOR TO THE PULMONARY SYNOVIAL SARCOM
     Route: 065

REACTIONS (3)
  - Synovial sarcoma [Recovered/Resolved]
  - Lung neoplasm malignant [Recovered/Resolved]
  - Off label use [Unknown]
